FAERS Safety Report 17947894 (Version 1)
Quarter: 2020Q2

REPORT INFORMATION
  Report Type: Spontaneous
  Country: US (occurrence: US)
  Receive Date: 20200625
  Receipt Date: 20200625
  Transmission Date: 20200714
  Serious: No
  Sender: FDA-Public Use
  Company Number: None

PATIENT
  Age: 64 Year
  Sex: Male
  Weight: 274 kg

DRUGS (2)
  1. CEFTAZIDIME (CEFTAZIDIME 1GM/VIL INJ) [Suspect]
     Active Substance: CEFTAZIDIME
     Indication: PRODUCT USED FOR UNKNOWN INDICATION
     Dates: end: 20200622
  2. PIPERACILLIN/TAZOBACTAM (PIPERACILLIN NA 2GM/TAZOBACTAM 0.25ML INJ, BA [Suspect]
     Active Substance: PIPERACILLIN SODIUM\TAZOBACTAM SODIUM
     Indication: PRODUCT USED FOR UNKNOWN INDICATION
     Dosage: ?          OTHER DOSE:GM;OTHER ROUTE:IV?
     Dates: start: 20200613, end: 20200614

REACTIONS (8)
  - Acute respiratory failure [None]
  - Infection [None]
  - Metabolic acidosis [None]
  - Shock [None]
  - Acute kidney injury [None]
  - Eosinophilia [None]
  - Nephritis [None]
  - Rash macular [None]

NARRATIVE: CASE EVENT DATE: 20200613
